FAERS Safety Report 19884353 (Version 7)
Quarter: 2023Q2

REPORT INFORMATION
  Report Type: Spontaneous
  Country: DE (occurrence: DE)
  Receive Date: 20210927
  Receipt Date: 20230425
  Transmission Date: 20230722
  Serious: Yes (Hospitalization, Other)
  Sender: FDA-Public Use
  Company Number: DE-ALKEM LABORATORIES LIMITED-DE-ALKEM-2021-05970

PATIENT
  Age: 32 Year
  Sex: Female
  Weight: 52 kg

DRUGS (14)
  1. PREGABALIN [Suspect]
     Active Substance: PREGABALIN
     Indication: Product used for unknown indication
     Dosage: 25 MILLIGRAM, QID EVERY 6 HRS (EVERY 0.25 DAY), CAPSULE (LYRICA)
     Route: 065
  2. LYRICA [Suspect]
     Active Substance: PREGABALIN
     Indication: Product used for unknown indication
     Dosage: 25 MILLIGRAM, QID (EVERY 0.25 DAY)
     Route: 065
  3. OCREVUS [Suspect]
     Active Substance: OCRELIZUMAB
     Indication: Relapsing-remitting multiple sclerosis
     Dosage: 300 MILLIGRAM, ONCE IN 2 WEEKS
     Route: 042
     Dates: start: 20181012
  4. OCREVUS [Suspect]
     Active Substance: OCRELIZUMAB
     Dosage: 300 MILLIGRAM
     Route: 042
     Dates: start: 20181026
  5. OCREVUS [Suspect]
     Active Substance: OCRELIZUMAB
     Dosage: 600 MILLIGRAM
     Route: 042
     Dates: start: 20190410
  6. OCREVUS [Suspect]
     Active Substance: OCRELIZUMAB
     Dosage: 600 MILLIGRAM, EVERY 178 DAY
     Route: 042
     Dates: start: 20210416
  7. OCREVUS [Suspect]
     Active Substance: OCRELIZUMAB
     Dosage: 600 MILLIGRAM
     Route: 042
  8. AQUALIBRA [Concomitant]
     Indication: Product used for unknown indication
     Dosage: UNK
     Route: 065
  9. DRONABINOL [Concomitant]
     Active Substance: DRONABINOL
     Indication: Product used for unknown indication
     Dosage: 4 DROP, QID (EVERY 0.25 DAY)
     Route: 065
  10. DALFAMPRIDINE [Concomitant]
     Active Substance: DALFAMPRIDINE
     Indication: Product used for unknown indication
     Dosage: 10 MILLIGRAM
     Route: 065
  11. MIRTAZAPINE [Concomitant]
     Active Substance: MIRTAZAPINE
     Indication: Neuralgia
     Dosage: 7.5 MILLIGRAM, QD
     Route: 065
  12. PANTOZOL [Concomitant]
     Active Substance: PANTOPRAZOLE SODIUM
     Indication: Product used for unknown indication
     Dosage: 40 MILLIGRAM
     Route: 065
  13. NABIXIMOLS [Concomitant]
     Active Substance: NABIXIMOLS
     Indication: Product used for unknown indication
     Dosage: UNK
     Route: 065
  14. Simplex [Concomitant]
     Indication: Product used for unknown indication
     Dosage: UNK
     Route: 065

REACTIONS (39)
  - Toxic nodular goitre [Recovered/Resolved]
  - Hyperthyroidism [Not Recovered/Not Resolved]
  - Pyelitis [Not Recovered/Not Resolved]
  - Multiple sclerosis [Recovered/Resolved]
  - Cardiovascular insufficiency [Recovered/Resolved]
  - Leukopenia [Recovered/Resolved]
  - Toxicity to various agents [Recovered/Resolved]
  - Pyelonephritis [Recovered/Resolved]
  - Heavy menstrual bleeding [Not Recovered/Not Resolved]
  - Pain [Not Recovered/Not Resolved]
  - Neuralgia [Not Recovered/Not Resolved]
  - Renal pain [Not Recovered/Not Resolved]
  - Weight decreased [Recovering/Resolving]
  - Nausea [Recovered/Resolved]
  - Body temperature increased [Recovered/Resolved]
  - Gastrointestinal infection [Recovered/Resolved]
  - Gastrointestinal hypermotility [Recovered/Resolved]
  - Ataxia [Recovered/Resolved]
  - Fatigue [Recovered/Resolved]
  - Oral mucosal erythema [Recovered/Resolved]
  - Sensory disturbance [Recovered/Resolved]
  - Menstrual disorder [Recovered/Resolved]
  - Heart rate increased [Recovered/Resolved]
  - Neuralgia [Recovered/Resolved]
  - Fatigue [Recovered/Resolved]
  - Oral pain [Recovered/Resolved]
  - Body temperature increased [Recovered/Resolved]
  - Urinary tract infection [Recovered/Resolved]
  - Blood pressure decreased [Recovered/Resolved]
  - Hypotension [Recovered/Resolved]
  - Muscular weakness [Recovered/Resolved]
  - Asthenia [Recovered/Resolved]
  - Headache [Recovered/Resolved]
  - Nasopharyngitis [Recovered/Resolved]
  - Gastrointestinal pain [Recovered/Resolved]
  - Muscle spasticity [Not Recovered/Not Resolved]
  - Influenza like illness [Recovered/Resolved]
  - Iron deficiency [Recovered/Resolved]
  - B-lymphocyte count decreased [Recovered/Resolved]

NARRATIVE: CASE EVENT DATE: 20181012
